FAERS Safety Report 18152492 (Version 1)
Quarter: 2020Q3

REPORT INFORMATION
  Report Type: Spontaneous
  Country: EG (occurrence: EG)
  Receive Date: 20200814
  Receipt Date: 20200814
  Transmission Date: 20201103
  Serious: Yes (Other)
  Sender: FDA-Public Use
  Company Number: EG-JNJFOC-20200813266

PATIENT

DRUGS (2)
  1. EVITHROM [Suspect]
     Active Substance: THROMBIN HUMAN
     Indication: HAEMOSTASIS
     Route: 065
  2. EVITHROM [Suspect]
     Active Substance: THROMBIN HUMAN
     Indication: WOUND

REACTIONS (6)
  - Product used for unknown indication [Unknown]
  - Interventional procedure [Unknown]
  - Off label use [Unknown]
  - Emphysema [Unknown]
  - Unevaluable event [Unknown]
  - Restenosis [Unknown]
